FAERS Safety Report 9188512 (Version 1)
Quarter: 2013Q1

REPORT INFORMATION
  Report Type: Spontaneous
  Country: CA (occurrence: CA)
  Receive Date: 20130325
  Receipt Date: 20130325
  Transmission Date: 20140127
  Serious: Yes (Other)
  Sender: FDA-Public Use
  Company Number: CA-ELI_LILLY_AND_COMPANY-CA201303005205

PATIENT
  Age: 65 Year
  Sex: Male

DRUGS (2)
  1. CIALIS [Suspect]
     Dosage: 20 MG, UNK
  2. CIALIS [Suspect]
     Dosage: 5 MG, UNK

REACTIONS (2)
  - Prostate cancer [Unknown]
  - Drug ineffective [Unknown]
